FAERS Safety Report 5248467-3 (Version None)
Quarter: 2007Q1

REPORT INFORMATION
  Report Type: 
  Country: None (occurrence: None)
  Receive Date: 20070227
  Receipt Date: 20070215
  Transmission Date: 20070707
  Serious: Yes (Other)
  Sender: FDA-Public Use
  Company Number: FR-PFIZER INC-2007014041

PATIENT
  Age: 43 Year
  Sex: Female
  Weight: 43 kg

DRUGS (4)
  1. LYRICA [Suspect]
  2. EFFEXOR [Concomitant]
  3. ZOLPIDEM TARTRATE [Concomitant]
  4. PRAZEPAM [Concomitant]

REACTIONS (1)
  - TETANY [None]
